FAERS Safety Report 8344503-6 (Version None)
Quarter: 2012Q2

REPORT INFORMATION
  Report Type: 
  Country: None (occurrence: None)
  Receive Date: 20120508
  Receipt Date: 20120430
  Transmission Date: 20120825
  Serious: Yes (Hospitalization)
  Sender: FDA-Public Use
  Company Number: PHHY2012DE037540

PATIENT
  Sex: Female
  Weight: 85 kg

DRUGS (5)
  1. BAYOTENSIN AKUT [Suspect]
     Indication: EMERGENCY CARE
     Dosage: 5 MG, DAILY IF NEEDED
     Route: 048
     Dates: start: 20110705
  2. RASILEZ HCT [Suspect]
     Indication: HYPERTENSION
     Dosage: 1 DF, DAILY
     Route: 048
     Dates: start: 20100917
  3. NEPRESOL [Suspect]
     Indication: HYPERTENSION
     Dosage: 1 DF, DAILY
     Route: 048
     Dates: start: 20100101, end: 20120322
  4. DIOVAN HCT [Suspect]
     Indication: HYPERTENSION
     Dosage: 1 DF, DAILY
     Route: 048
     Dates: start: 20090920, end: 20120202
  5. NEBIVOLOL [Suspect]
     Indication: HYPERTENSION
     Dosage: 5 MG, DAILY
     Route: 048
     Dates: start: 20100101

REACTIONS (3)
  - BILE DUCT STONE [None]
  - TRANSAMINASES INCREASED [None]
  - HEPATITIS TOXIC [None]
